FAERS Safety Report 8141651-0 (Version None)
Quarter: 2012Q1

REPORT INFORMATION
  Report Type: 
  Country: None (occurrence: None)
  Receive Date: 20120216
  Receipt Date: 20120209
  Transmission Date: 20120608
  Serious: Yes (Hospitalization)
  Sender: FDA-Public Use
  Company Number: CA-ABBOTT-12P-028-0903070-00

PATIENT
  Sex: Female
  Weight: 94 kg

DRUGS (9)
  1. IMURAN [Concomitant]
     Indication: PRODUCT USED FOR UNKNOWN INDICATION
     Route: 048
     Dates: start: 20110303
  2. OMEPRAZOLE [Concomitant]
     Indication: PRODUCT USED FOR UNKNOWN INDICATION
     Route: 048
     Dates: start: 19960529
  3. VITAMIN B-12 [Concomitant]
     Indication: PRODUCT USED FOR UNKNOWN INDICATION
     Route: 048
     Dates: start: 20090101
  4. PERINDOPRIL ERBUMINE [Concomitant]
     Indication: PRODUCT USED FOR UNKNOWN INDICATION
     Route: 048
  5. SYNTHROID [Concomitant]
     Indication: PRODUCT USED FOR UNKNOWN INDICATION
     Route: 048
  6. HUMIRA [Suspect]
     Indication: CROHN'S DISEASE
     Dosage: ONCE
     Route: 058
     Dates: start: 20110427, end: 20110427
  7. HUMIRA [Suspect]
     Dosage: ONCE
     Route: 058
     Dates: start: 20110511, end: 20110511
  8. HUMIRA [Suspect]
     Route: 058
     Dates: start: 20110525
  9. PREDNISONE [Concomitant]
     Indication: PRODUCT USED FOR UNKNOWN INDICATION
     Route: 048
     Dates: start: 20120125, end: 20120207

REACTIONS (3)
  - CONTUSION [None]
  - RIB FRACTURE [None]
  - HYPOKALAEMIA [None]
